FAERS Safety Report 9182977 (Version 1)
Quarter: 2012Q4

REPORT INFORMATION
  Report Type: 
  Country: US (occurrence: US)
  Receive Date: 20121030
  Receipt Date: 20121030
  Transmission Date: 20130627
  Serious: No
  Sender: FDA-Public Use
  Company Number: US-BIOGENIDEC-2012BI047711

PATIENT
  Sex: Female

DRUGS (3)
  1. TYSABRI [Suspect]
     Indication: MULTIPLE SCLEROSIS
     Route: 042
     Dates: start: 20121008
  2. ZOLOFT [Concomitant]
     Indication: MENTAL DISORDER
  3. RISPERDAL [Concomitant]
     Indication: MENTAL DISORDER

REACTIONS (2)
  - Musculoskeletal disorder [Unknown]
  - Dysphonia [Unknown]
